FAERS Safety Report 7602649-1 (Version None)
Quarter: 2011Q3

REPORT INFORMATION
  Report Type: 
  Country: None (occurrence: None)
  Receive Date: 20110712
  Receipt Date: 20110629
  Transmission Date: 20111222
  Serious: Yes (Hospitalization, Other)
  Sender: FDA-Public Use
  Company Number: CA-ELI_LILLY_AND_COMPANY-CA201106008517

PATIENT
  Sex: Male

DRUGS (9)
  1. LORAZEPAM [Concomitant]
  2. ZYPREXA [Suspect]
     Dosage: 20 MG, EACH EVENING
  3. LERITINE [Concomitant]
  4. TEGRETOL [Concomitant]
  5. VALPROATE SODIUM [Concomitant]
  6. TOPAMAX [Concomitant]
  7. ZYPREXA [Suspect]
     Indication: SCHIZOAFFECTIVE DISORDER
     Dosage: 10 MG, EACH EVENING
     Dates: start: 19990811
  8. PAROXETINE HCL [Concomitant]
  9. CLONAZEPAM [Concomitant]

REACTIONS (16)
  - DIABETES MELLITUS [None]
  - RHABDOMYOLYSIS [None]
  - RENAL FAILURE ACUTE [None]
  - ANAEMIA [None]
  - HYPERGLYCAEMIA [None]
  - NEUROLEPTIC MALIGNANT SYNDROME [None]
  - MYOPATHY [None]
  - GASTROINTESTINAL HAEMORRHAGE [None]
  - DIABETIC NEUROPATHY [None]
  - PNEUMONIA [None]
  - BLOOD CHOLESTEROL INCREASED [None]
  - DIABETIC COMA [None]
  - RESPIRATORY FAILURE [None]
  - DIABETIC KETOACIDOSIS [None]
  - LEFT VENTRICULAR DYSFUNCTION [None]
  - WEIGHT INCREASED [None]
